FAERS Safety Report 9198319 (Version 2)
Quarter: 2013Q2

REPORT INFORMATION
  Report Type: Spontaneous
  Country: CH (occurrence: CH)
  Receive Date: 20130329
  Receipt Date: 20130503
  Transmission Date: 20140414
  Serious: Yes (Other)
  Sender: FDA-Public Use
  Company Number: CH-AMGEN-CHESP2013006860

PATIENT
  Age: 47 Year
  Sex: Female
  Weight: 63 kg

DRUGS (2)
  1. PROLIA [Suspect]
     Indication: OSTEOPOROSIS POSTMENOPAUSAL
     Dosage: 60 MG, Q6H
     Route: 058
     Dates: start: 20120501, end: 20130110
  2. CALCIMAGON D3 [Concomitant]
     Indication: OSTEOPOROSIS
     Dosage: 2 UNK, QD
     Route: 048

REACTIONS (13)
  - Epidermal necrosis [Unknown]
  - Skin lesion [Unknown]
  - Arthralgia [Unknown]
  - Adverse reaction [Unknown]
  - Flushing [Recovered/Resolved]
  - Induration [Unknown]
  - Inflammation [Unknown]
  - Panniculitis [Unknown]
  - Drug eruption [Recovering/Resolving]
  - Pruritus [Unknown]
  - Bone pain [Unknown]
  - Dermatitis [Unknown]
  - Erythema [Unknown]
